FAERS Safety Report 23835177 (Version 1)
Quarter: 2024Q2

REPORT INFORMATION
  Report Type: Spontaneous
  Country: AU (occurrence: AU)
  Receive Date: 20240509
  Receipt Date: 20240509
  Transmission Date: 20240715
  Serious: Yes (Other)
  Sender: FDA-Public Use
  Company Number: AU-GSKCCFAPAC-Case-01972697_AE-83028

PATIENT

DRUGS (1)
  1. NUCALA [Suspect]
     Active Substance: MEPOLIZUMAB
     Indication: Eosinophilic granulomatosis with polyangiitis
     Dosage: UNK

REACTIONS (10)
  - Diverticulitis [Unknown]
  - Pain [Unknown]
  - Abdominal pain lower [Unknown]
  - Back pain [Unknown]
  - Muscle spasms [Unknown]
  - Mucous stools [Unknown]
  - Diarrhoea [Unknown]
  - Bladder pain [Unknown]
  - Pruritus [Unknown]
  - Inappropriate schedule of product administration [Unknown]

NARRATIVE: CASE EVENT DATE: 20240504
